FAERS Safety Report 5254068-3 (Version None)
Quarter: 2007Q1

REPORT INFORMATION
  Report Type: 
  Country: None (occurrence: None)
  Receive Date: 20070302
  Receipt Date: 20070226
  Transmission Date: 20070707
  Serious: Yes (Hospitalization)
  Sender: FDA-Public Use
  Company Number: EE-BAXTER-2007BH002365

PATIENT
  Sex: Male

DRUGS (3)
  1. EXTRANEAL [Suspect]
     Indication: DRUG USE FOR UNKNOWN INDICATION
     Route: 033
     Dates: start: 20070215
  2. PHYSIONEAL, UNSPECIFIED PRODUCT [Suspect]
     Indication: DRUG USE FOR UNKNOWN INDICATION
     Route: 033
     Dates: start: 20070215
  3. NUTRINEAL [Suspect]
     Indication: DRUG USE FOR UNKNOWN INDICATION
     Route: 033
     Dates: start: 20070215

REACTIONS (2)
  - MEDICATION ERROR [None]
  - SWELLING [None]
